FAERS Safety Report 8909542 (Version 1)
Quarter: 2012Q4

REPORT INFORMATION
  Report Type: 
  Country: US (occurrence: US)
  Receive Date: 20121115
  Receipt Date: 20121115
  Transmission Date: 20130627
  Serious: No
  Sender: FDA-Public Use
  Company Number: US-009507513-1211USA005468

PATIENT
  Sex: Female

DRUGS (2)
  1. IMPLANON [Suspect]
     Indication: CONTRACEPTION
     Dosage: 1 DF, UNK
     Route: 059
     Dates: start: 201201, end: 20121108
  2. IMPLANON [Suspect]
     Dosage: 1 DF, UNK
     Route: 059

REACTIONS (2)
  - Menstruation irregular [Unknown]
  - Medical device complication [Unknown]
